FAERS Safety Report 10599438 (Version 3)
Quarter: 2015Q1

REPORT INFORMATION
  Report Type: Spontaneous
  Country: JP (occurrence: JP)
  Receive Date: 20141121
  Receipt Date: 20150115
  Transmission Date: 20150720
  Serious: Yes (Other)
  Sender: FDA-Public Use
  Company Number: JP-GLAXOSMITHKLINE-JP2014GSK023582

PATIENT
  Age: 71 Year
  Sex: Female
  Weight: 70 kg

DRUGS (4)
  1. ACARBOSE. [Concomitant]
     Active Substance: ACARBOSE
  2. OMEGA-3-ACID ETHYL ESTERS. [Suspect]
     Active Substance: OMEGA-3-ACID ETHYL ESTERS
     Indication: HYPERLIPIDAEMIA
     Dosage: 2000 MG, QD
     Route: 048
     Dates: start: 20140812, end: 20140926
  3. ECARD COMBINATION [Concomitant]
  4. METACT COMBINATION [Concomitant]

REACTIONS (2)
  - Blood creatine phosphokinase increased [Recovered/Resolved]
  - Hypoaesthesia [Recovering/Resolving]

NARRATIVE: CASE EVENT DATE: 201409
